FAERS Safety Report 10262378 (Version 2)
Quarter: 2014Q3

REPORT INFORMATION
  Report Type: Spontaneous
  Country: IT (occurrence: IT)
  Receive Date: 20140626
  Receipt Date: 20140929
  Transmission Date: 20150326
  Serious: Yes (Hospitalization)
  Sender: FDA-Public Use
  Company Number: IT-PFIZER INC-2014172594

PATIENT
  Age: 45 Year
  Sex: Male

DRUGS (3)
  1. SOMATROPIN [Suspect]
     Active Substance: SOMATROPIN
     Indication: SUBSTANCE ABUSE
     Dosage: 4 IU, DAILY
     Route: 058
     Dates: start: 20140410, end: 20140610
  2. TESTOSTERONE. [Suspect]
     Active Substance: TESTOSTERONE
     Indication: SUBSTANCE ABUSE
     Dosage: 300 MG, WEEKLY
     Route: 030
     Dates: start: 20140510, end: 20140610
  3. NANDROLONE DECANOATE. [Suspect]
     Active Substance: NANDROLONE DECANOATE
     Indication: SUBSTANCE ABUSE
     Dosage: 200 MG, WEEKLY
     Route: 030
     Dates: start: 20140510, end: 20140610

REACTIONS (2)
  - Substance abuse [Not Recovered/Not Resolved]
  - Ventricular hypertrophy [Not Recovered/Not Resolved]

NARRATIVE: CASE EVENT DATE: 20140610
